FAERS Safety Report 20181225 (Version 3)
Quarter: 2023Q2

REPORT INFORMATION
  Report Type: Report from Study
  Country: US (occurrence: US)
  Receive Date: 20211214
  Receipt Date: 20230630
  Transmission Date: 20230722
  Serious: Yes (Other)
  Sender: FDA-Public Use
  Company Number: US-GW PHARMA-202112USGW06105

PATIENT
  Sex: Female
  Weight: 79.2 kg

DRUGS (2)
  1. EPIDIOLEX [Suspect]
     Active Substance: CANNABIDIOL
     Indication: Seizure
     Dosage: 550 MILLIGRAM, QD (2.5ML IN THE MORNING AND 3ML IN THE EVENING), UPPED MEDICATION
     Route: 048
  2. EPIDIOLEX [Suspect]
     Active Substance: CANNABIDIOL
     Dosage: 4 MILLILITER, BID
     Route: 048
     Dates: start: 202004

REACTIONS (3)
  - Bedridden [Unknown]
  - Seizure [Not Recovered/Not Resolved]
  - Product administration interrupted [Unknown]
